FAERS Safety Report 7325301-9 (Version None)
Quarter: 2011Q1

REPORT INFORMATION
  Report Type: 
  Country: None (occurrence: None)
  Receive Date: 20110302
  Receipt Date: 20110216
  Transmission Date: 20110831
  Serious: Yes (Hospitalization, Other)
  Sender: FDA-Public Use
  Company Number: US-CELGENEUS-163-21880-11022160

PATIENT
  Sex: Male

DRUGS (3)
  1. ASA [Concomitant]
     Route: 065
  2. REVLIMID [Suspect]
     Indication: MULTIPLE MYELOMA
     Dosage: 10 MILLIGRAM
     Route: 048
     Dates: start: 20101001
  3. PLAVIX [Concomitant]
     Route: 065

REACTIONS (4)
  - CAROTID ARTERY OCCLUSION [None]
  - RASH [None]
  - CEREBROVASCULAR ACCIDENT [None]
  - RENAL FAILURE [None]
